FAERS Safety Report 6227279-8 (Version None)
Quarter: 2009Q2

REPORT INFORMATION
  Report Type: 
  Country: None (occurrence: None)
  Receive Date: 20090612
  Receipt Date: 20090529
  Transmission Date: 20091009
  Serious: No
  Sender: FDA-Public Use
  Company Number: US-ABBOTT-09P-163-0576860-00

PATIENT
  Age: 36 Year
  Sex: Male

DRUGS (1)
  1. HUMIRA [Suspect]
     Indication: CROHN'S DISEASE
     Dates: start: 20090521

REACTIONS (4)
  - INJECTION SITE ERYTHEMA [None]
  - INJECTION SITE PAPULE [None]
  - INJECTION SITE REACTION [None]
  - INJECTION SITE WARMTH [None]
